FAERS Safety Report 4548289-2 (Version None)
Quarter: 2005Q1

REPORT INFORMATION
  Report Type: 
  Country: None (occurrence: None)
  Receive Date: 20050106
  Receipt Date: 20050106
  Transmission Date: 20050727
  Serious: Yes (Hospitalization)
  Sender: FDA-Public Use
  Company Number: None

PATIENT
  Age: 47 Year
  Sex: Female

DRUGS (3)
  1. RADIOACTIVE IODINE I-131 [Suspect]
     Indication: BASEDOW'S DISEASE
     Dosage: 22.1 MCI
     Dates: start: 19970901, end: 19991101
  2. RADIOACTIVE IODINE I-131 [Suspect]
     Indication: HYPERTHYROIDISM
     Dosage: 22.1 MCI
     Dates: start: 19970901, end: 19991101
  3. PROPYLTHIOURACIL [Concomitant]

REACTIONS (1)
  - ACUTE PROMYELOCYTIC LEUKAEMIA [None]
